FAERS Safety Report 4582433-6 (Version None)
Quarter: 2005Q1

REPORT INFORMATION
  Report Type: 
  Country: None (occurrence: None)
  Receive Date: 20050203
  Receipt Date: 20050121
  Transmission Date: 20050727
  Serious: Yes (Life-Threatening)
  Sender: FDA-Public Use
  Company Number: D01200500580

PATIENT
  Age: 44 Year
  Sex: Male
  Weight: 94 kg

DRUGS (17)
  1. RASBURICASE - SOLUTION - 0.2 MG/ KG [Suspect]
     Indication: HYPERURICAEMIA
     Dosage: 0.2 MG/KG QD - INTRAVENOUS NOS
     Route: 042
     Dates: start: 20050121
  2. RASBURICASE - SOLUTION - 0.2 MG/ KG [Suspect]
     Indication: TUMOUR LYSIS SYNDROME
     Dosage: 0.2 MG/KG QD - INTRAVENOUS NOS
     Route: 042
     Dates: start: 20050121
  3. ALLOPURINOL [Suspect]
     Dosage: 300 MG QD - ORAL
     Route: 048
     Dates: start: 20050115, end: 20050117
  4. CYTARABINE [Concomitant]
  5. MITOXANTRONE [Concomitant]
  6. PIPERACILLIN SODIUM, TAZOBACTAM SODIUM [Concomitant]
  7. GENTAMICIN [Concomitant]
  8. CEFTAZIDIME [Concomitant]
  9. VANCOMYCIN [Concomitant]
  10. ACYCLOVIR [Concomitant]
  11. VORICONAZOLE [Concomitant]
  12. FUROSEMIDE [Concomitant]
  13. ACETAMINOPHEN [Concomitant]
  14. OXYCODONE HYDROCHLORIDE, OXYCODONE TEREPHTHALATE, PARACETAMOL [Concomitant]
  15. ZOLPIDEM TARTRATE [Concomitant]
  16. DIPHENHYDRAMINE HCL [Concomitant]
  17. PETHIDINE HYDROCHLORIDE [Concomitant]

REACTIONS (11)
  - ALANINE AMINOTRANSFERASE DECREASED [None]
  - ASPARTATE AMINOTRANSFERASE INCREASED [None]
  - BLOOD FIBRINOGEN INCREASED [None]
  - BLOOD LACTATE DEHYDROGENASE INCREASED [None]
  - CONFUSIONAL STATE [None]
  - DYSPNOEA [None]
  - GAMMA-GLUTAMYLTRANSFERASE INCREASED [None]
  - GENERAL PHYSICAL HEALTH DETERIORATION [None]
  - LIVER FUNCTION TEST ABNORMAL [None]
  - MUSCLE TWITCHING [None]
  - RHABDOMYOLYSIS [None]
